FAERS Safety Report 23172677 (Version 2)
Quarter: 2023Q4

REPORT INFORMATION
  Report Type: Spontaneous
  Country: RU (occurrence: RU)
  Receive Date: 20231110
  Receipt Date: 20231130
  Transmission Date: 20240110
  Serious: Yes (Death, Other)
  Sender: FDA-Public Use
  Company Number: RU-ALXN-202311RUS000496RU

PATIENT
  Age: 18 Year
  Sex: Male
  Weight: 69 kg

DRUGS (2)
  1. ULTOMIRIS [Suspect]
     Active Substance: RAVULIZUMAB-CWVZ
     Indication: Paroxysmal nocturnal haemoglobinuria
     Dosage: UNK MILLIGRAM
     Route: 065
     Dates: start: 20200319
  2. ULTOMIRIS [Suspect]
     Active Substance: RAVULIZUMAB-CWVZ
     Dosage: 3300 MILLIGRAM
     Route: 065
     Dates: start: 202008

REACTIONS (6)
  - Sepsis [Fatal]
  - Pulmonary hypoperfusion [Unknown]
  - Headache [Recovered/Resolved]
  - Blood pressure increased [Recovered/Resolved]
  - Pyrexia [Unknown]
  - Rash [Unknown]

NARRATIVE: CASE EVENT DATE: 20200319
